FAERS Safety Report 7751081-9 (Version None)
Quarter: 2011Q3

REPORT INFORMATION
  Report Type: 
  Country: None (occurrence: None)
  Receive Date: 20110914
  Receipt Date: 20110912
  Transmission Date: 20111222
  Serious: Yes (Other)
  Sender: FDA-Public Use
  Company Number: US-BAYER-2011-071701

PATIENT
  Age: 78 Year
  Sex: Female

DRUGS (1)
  1. NEXAVAR [Suspect]
     Indication: HEPATIC NEOPLASM MALIGNANT
     Dosage: 400 MG, BID
     Route: 048
     Dates: start: 20110601

REACTIONS (8)
  - RASH [None]
  - VOMITING [None]
  - FLATULENCE [None]
  - DIARRHOEA [None]
  - CHEST PAIN [None]
  - APHAGIA [None]
  - NAUSEA [None]
  - BLOOD PRESSURE INCREASED [None]
